FAERS Safety Report 21410475 (Version 1)
Quarter: 2022Q4

REPORT INFORMATION
  Report Type: Spontaneous
  Country: CN (occurrence: None)
  Receive Date: 20221005
  Receipt Date: 20221005
  Transmission Date: 20230113
  Serious: Yes (Life-Threatening)
  Sender: FDA-Public Use
  Company Number: 2022A335930

PATIENT
  Age: 69 Year
  Sex: Male
  Weight: 48 kg

DRUGS (3)
  1. BUDESONIDE [Suspect]
     Active Substance: BUDESONIDE
     Indication: Inflammation
     Route: 055
     Dates: start: 20220722, end: 20220722
  2. BROMIDE [Concomitant]
     Indication: Bronchospasm
     Route: 055
     Dates: start: 20220722, end: 20220722
  3. STERILE WATER [Concomitant]
     Active Substance: WATER
     Route: 065
     Dates: start: 20220722, end: 20220722

REACTIONS (1)
  - Left ventricular failure [Recovering/Resolving]

NARRATIVE: CASE EVENT DATE: 20220722
